FAERS Safety Report 11047957 (Version 1)
Quarter: 2015Q2

REPORT INFORMATION
  Report Type: Spontaneous
  Country: US (occurrence: None)
  Receive Date: 20150417
  Receipt Date: 20150417
  Transmission Date: 20150821
  Serious: Yes (Hospitalization)
  Sender: FDA-Public Use
  Company Number: None

PATIENT
  Age: 72 Year
  Sex: Female
  Weight: 45.81 kg

DRUGS (20)
  1. LISINOPROL [Concomitant]
     Active Substance: LISINOPRIL
  2. LORAZEPAM. [Concomitant]
     Active Substance: LORAZEPAM
  3. MAG OX [Concomitant]
     Active Substance: MAGNESIUM OXIDE
  4. MELOXICAM. [Concomitant]
     Active Substance: MELOXICAM
  5. METOCLOPRAMODE [Concomitant]
  6. DRISDOL [Concomitant]
     Active Substance: ERGOCALCIFEROL
  7. MIRTAZAPINE. [Concomitant]
     Active Substance: MIRTAZAPINE
  8. ZOLPODEM [Concomitant]
  9. ASPRIN [Concomitant]
     Active Substance: ASPIRIN
  10. FLURICAONE [Concomitant]
  11. HYOSCYAMONE SULFATE [Concomitant]
  12. ONDANSETRON [Concomitant]
     Active Substance: ONDANSETRON
  13. PANTORPRAZOLE [Concomitant]
  14. MYRBETRIQ [Suspect]
     Active Substance: MIRABEGRON
     Indication: POLYURIA
     Dosage: 1 @ BED TIME
     Route: 048
     Dates: start: 20150324, end: 20150412
  15. FUROSEMIDE. [Concomitant]
     Active Substance: FUROSEMIDE
  16. KEPPRA [Concomitant]
     Active Substance: LEVETIRACETAM
  17. NORCO [Concomitant]
     Active Substance: ACETAMINOPHEN\HYDROCODONE BITARTRATE
  18. PLAVIX [Concomitant]
     Active Substance: CLOPIDOGREL BISULFATE
  19. NITRO [Concomitant]
     Active Substance: NITROGLYCERIN
  20. COREY [Concomitant]

REACTIONS (2)
  - Chest pain [None]
  - Blood pressure increased [None]

NARRATIVE: CASE EVENT DATE: 20150412
